APPROVED DRUG PRODUCT: OXYBUTYNIN CHLORIDE
Active Ingredient: OXYBUTYNIN CHLORIDE
Strength: 5MG
Dosage Form/Route: TABLET;ORAL
Application: A209335 | Product #001 | TE Code: AB
Applicant: ABHAI LLC
Approved: Dec 22, 2017 | RLD: No | RS: No | Type: RX